FAERS Safety Report 5933731-2 (Version None)
Quarter: 2008Q4

REPORT INFORMATION
  Report Type: 
  Country: None (occurrence: None)
  Receive Date: 20081024
  Receipt Date: 20081017
  Transmission Date: 20090506
  Serious: Yes (Hospitalization)
  Sender: FDA-Public Use
  Company Number: PAR_02390_2008

PATIENT
  Age: 74 Year
  Sex: Female

DRUGS (1)
  1. CAPTOPRIL [Suspect]
     Indication: HYPERTENSION
     Dosage: (50 MG)

REACTIONS (3)
  - LICHEN PLANUS [None]
  - PEMPHIGOID [None]
  - RASH PRURITIC [None]
